FAERS Safety Report 4631093-4 (Version None)
Quarter: 2005Q2

REPORT INFORMATION
  Report Type: 
  Country: None (occurrence: None)
  Receive Date: 20050406
  Receipt Date: 20050406
  Transmission Date: 20051028
  Serious: Yes (Hospitalization)
  Sender: FDA-Public Use
  Company Number: None

PATIENT
  Age: 66 Year
  Sex: Male
  Weight: 111.5 kg

DRUGS (14)
  1. INDOMETHACIN [Suspect]
     Indication: GOUT
     Dosage: 4 PILLS/DAY
  2. CYMBALTA [Concomitant]
  3. PREDNISONE [Concomitant]
  4. OXYCODONE HCL [Concomitant]
  5. ALLOPURINOL [Concomitant]
  6. GLYBURIDE [Concomitant]
  7. DIOVAN [Concomitant]
  8. AVANDIA [Concomitant]
  9. LASIX [Concomitant]
  10. REGLAN [Concomitant]
  11. LISINOPRIL [Concomitant]
  12. ZOCOR [Concomitant]
  13. ASPIRIN [Concomitant]
  14. PLAVIX [Concomitant]

REACTIONS (8)
  - ABDOMINAL PAIN UPPER [None]
  - DIZZINESS [None]
  - DUODENAL ULCER [None]
  - GASTRIC ULCER [None]
  - GASTRITIS [None]
  - MELAENA [None]
  - TREATMENT NONCOMPLIANCE [None]
  - WEIGHT DECREASED [None]
